FAERS Safety Report 19245810 (Version 3)
Quarter: 2021Q2

REPORT INFORMATION
  Report Type: Spontaneous
  Country: US (occurrence: US)
  Receive Date: 20210511
  Receipt Date: 20210524
  Transmission Date: 20210717
  Serious: Yes (Other)
  Sender: FDA-Public Use
  Company Number: US-GLAXOSMITHKLINE-US2021100182

PATIENT
  Sex: Female

DRUGS (1)
  1. ZEJULA [Suspect]
     Active Substance: NIRAPARIB
     Indication: OVARIAN CANCER
     Dosage: 200 MG, QD
     Route: 048
     Dates: start: 20210421

REACTIONS (9)
  - Anxiety [Recovered/Resolved]
  - Blood pressure systolic increased [Unknown]
  - Hepatic neoplasm [Unknown]
  - Blood pressure increased [Unknown]
  - Constipation [Recovered/Resolved]
  - Heart rate increased [Unknown]
  - Product dose omission in error [Unknown]
  - Hyperhidrosis [Unknown]
  - Nail disorder [Unknown]
